FAERS Safety Report 5306592-2 (Version None)
Quarter: 2007Q2

REPORT INFORMATION
  Report Type: 
  Country: None (occurrence: None)
  Receive Date: 20070418
  Receipt Date: 20070402
  Transmission Date: 20071010
  Serious: No
  Sender: FDA-Public Use
  Company Number: 2007EU000680

PATIENT
  Age: 25 Year
  Sex: Male
  Weight: 75 kg

DRUGS (3)
  1. PROGRAF [Suspect]
     Indication: DERMATITIS ATOPIC
     Dosage: SEE IMAGE
     Route: 061
     Dates: start: 20031216, end: 20040105
  2. PROGRAF [Suspect]
     Indication: DERMATITIS ATOPIC
     Dosage: SEE IMAGE
     Route: 061
     Dates: start: 20050222, end: 20050302
  3. PROGRAF [Suspect]
     Indication: DERMATITIS ATOPIC
     Dosage: SEE IMAGE
     Route: 061
     Dates: start: 20060314, end: 20070109

REACTIONS (8)
  - BLOOD LACTATE DEHYDROGENASE INCREASED [None]
  - DERMATITIS ATOPIC [None]
  - ECZEMA [None]
  - FATIGUE [None]
  - INSOMNIA [None]
  - LYMPHADENOPATHY [None]
  - LYMPHOMA [None]
  - SUPERINFECTION [None]
